FAERS Safety Report 22152905 (Version 1)
Quarter: 2023Q1

REPORT INFORMATION
  Report Type: Spontaneous
  Country: US (occurrence: US)
  Receive Date: 20230329
  Receipt Date: 20230329
  Transmission Date: 20230417
  Serious: No
  Sender: FDA-Public Use
  Company Number: US-KARYOPHARM-2023KPT000334

PATIENT

DRUGS (21)
  1. XPOVIO [Suspect]
     Active Substance: SELINEXOR
     Indication: Brain neoplasm malignant
     Dosage: 60 MG, WEEKLY
     Route: 048
     Dates: start: 20230109, end: 2023
  2. AMLODIPINE BESYLATE [Concomitant]
     Active Substance: AMLODIPINE BESYLATE
  3. ATORVASTATIN CALCIUM [Concomitant]
     Active Substance: ATORVASTATIN CALCIUM
  4. DEXAMETHASONE [Concomitant]
     Active Substance: DEXAMETHASONE
  5. ELIQUIS [Concomitant]
     Active Substance: APIXABAN
  6. BACITRACIN [Concomitant]
     Active Substance: BACITRACIN
  7. GABAPENTIN [Concomitant]
     Active Substance: GABAPENTIN
  8. HUMALOG [Concomitant]
     Active Substance: INSULIN LISPRO
  9. JARDIANCE [Concomitant]
     Active Substance: EMPAGLIFLOZIN
  10. LASIX [Concomitant]
     Active Substance: FUROSEMIDE
  11. LEXAPRO [Concomitant]
     Active Substance: ESCITALOPRAM OXALATE
  12. LORAZEPAM [Concomitant]
     Active Substance: LORAZEPAM
  13. MIDAZOLAM HYDROCHLORIDE [Concomitant]
     Active Substance: MIDAZOLAM HYDROCHLORIDE
  14. ONDANSETRON HCL [Concomitant]
     Active Substance: ONDANSETRON HYDROCHLORIDE
  15. PANTOPRAZOLE SODIUM [Concomitant]
     Active Substance: PANTOPRAZOLE SODIUM
  16. QUETIAPINE FUMARATE [Concomitant]
     Active Substance: QUETIAPINE FUMARATE
  17. ROSUVASTATIN CALCIUM [Concomitant]
     Active Substance: ROSUVASTATIN CALCIUM
  18. VIMPAT [Concomitant]
     Active Substance: LACOSAMIDE
  19. ZONISAMIDE [Concomitant]
     Active Substance: ZONISAMIDE
  20. CEPHALEXIN [Concomitant]
     Active Substance: CEPHALEXIN
  21. VALACYCLOVIR HYDROCHLORIDE [Concomitant]
     Active Substance: VALACYCLOVIR HYDROCHLORIDE

REACTIONS (9)
  - Aggression [Recovering/Resolving]
  - Gait disturbance [Recovering/Resolving]
  - Diarrhoea [Unknown]
  - Fatigue [Unknown]
  - Epistaxis [Recovered/Resolved]
  - Pyrexia [Recovering/Resolving]
  - Dyspnoea [Recovering/Resolving]
  - Confusional state [Recovering/Resolving]
  - Off label use [Unknown]

NARRATIVE: CASE EVENT DATE: 20230101
